FAERS Safety Report 7566154 (Version 3)
Quarter: 2016Q2

REPORT INFORMATION
  Report Type: Spontaneous
  Country: FR (occurrence: FR)
  Receive Date: 20100830
  Receipt Date: 20160502
  Transmission Date: 20160815
  Serious: Yes (Hospitalization)
  Sender: FDA-Public Use
  Company Number: FR-ELI_LILLY_AND_COMPANY-FR201008004525

PATIENT
  Age: 65 Year
  Sex: Male

DRUGS (1)
  1. ZYPADHERA [Suspect]
     Active Substance: OLANZAPINE PAMOATE
     Dosage: 300 MG, EVERY 15 DAYS
     Route: 030
     Dates: start: 20100621

REACTIONS (7)
  - Altered state of consciousness [Recovered/Resolved]
  - Bradyphrenia [Recovered/Resolved]
  - Body temperature decreased [Recovered/Resolved]
  - Drug level above therapeutic [Recovered/Resolved]
  - Blood pressure decreased [Recovered/Resolved]
  - Somnolence [Recovered/Resolved]
  - Aggression [Recovered/Resolved]

NARRATIVE: CASE EVENT DATE: 20100721
